FAERS Safety Report 7741646-2 (Version None)
Quarter: 2011Q3

REPORT INFORMATION
  Report Type: 
  Country: None (occurrence: None)
  Receive Date: 20110911
  Receipt Date: 20110830
  Transmission Date: 20111222
  Serious: Yes (Other)
  Sender: FDA-Public Use
  Company Number: CO-BRISTOL-MYERS SQUIBB COMPANY-16038309

PATIENT

DRUGS (1)
  1. ORENCIA [Suspect]
     Dates: start: 20110713

REACTIONS (1)
  - COUNTERFEIT DRUG ADMINISTERED [None]
